FAERS Safety Report 6452706-0 (Version None)
Quarter: 2009Q4

REPORT INFORMATION
  Report Type: 
  Country: None (occurrence: None)
  Receive Date: 20091124
  Receipt Date: 20091117
  Transmission Date: 20100525
  Serious: Yes (Hospitalization)
  Sender: FDA-Public Use
  Company Number: BE-WYE-H12260909

PATIENT
  Age: 51 Year
  Sex: Male

DRUGS (3)
  1. PANTOZOL [Suspect]
     Indication: GASTROOESOPHAGEAL REFLUX DISEASE
     Dosage: UNSPECIFIED
  2. GLUCOPHAGE [Concomitant]
     Dosage: UNSPECIFIED
  3. CLAVUCID [Concomitant]
     Dosage: UNSPECIFIED

REACTIONS (1)
  - RENAL FAILURE ACUTE [None]
